FAERS Safety Report 19185942 (Version 2)
Quarter: 2021Q2

REPORT INFORMATION
  Report Type: Report from Study
  Country: US (occurrence: US)
  Receive Date: 20210427
  Receipt Date: 20210511
  Transmission Date: 20210717
  Serious: Yes (Other)
  Sender: FDA-Public Use
  Company Number: US-ROCHE-2816820

PATIENT
  Age: 73 Year
  Sex: Male
  Weight: 83 kg

DRUGS (17)
  1. XELODA [Concomitant]
     Active Substance: CAPECITABINE
  2. FINASTERIDE. [Concomitant]
     Active Substance: FINASTERIDE
  3. METFORMIN [Concomitant]
     Active Substance: METFORMIN HYDROCHLORIDE
  4. FLOMAX [Concomitant]
     Active Substance: TAMSULOSIN HYDROCHLORIDE
  5. ATEZOLIZUMAB. [Suspect]
     Active Substance: ATEZOLIZUMAB
     Indication: PANCREATIC CARCINOMA
     Dosage: ON DAYS 1 AND 15 OF EACH CYCLE?DATE OF LAST DOSE: 19/MAR/2021
     Route: 042
     Dates: start: 20210319
  6. LISINOPRIL. [Concomitant]
     Active Substance: LISINOPRIL
  7. COMPAZINE [Concomitant]
     Active Substance: PROCHLORPERAZINE MALEATE
  8. COBIMETINIB. [Suspect]
     Active Substance: COBIMETINIB
     Indication: PANCREATIC CARCINOMA
     Dosage: SUBSEQUENT DOSES OF 40 MG 2 TABLETS ON 19/MAR/2021 AT 11.11 AM, 20/MAR/2021 TO 24/MAR/2021 AT 9.00 A
     Route: 048
     Dates: start: 20210319
  9. HYDROXYCHLOROQUINE [Suspect]
     Active Substance: HYDROXYCHLOROQUINE
     Indication: PANCREATIC CARCINOMA
     Dosage: SUBSEQUENT DOSES OF 600 MG 3 TABLETS ON 19/MAR/2021 AT 11.11 AM AND 9 PM, 20/MAR/2021 TO 24/MAR/2021
     Route: 048
     Dates: start: 20210319
  10. INSULIN [Concomitant]
     Active Substance: INSULIN NOS
  11. CREON [Concomitant]
     Active Substance: PANCRELIPASE AMYLASE\PANCRELIPASE LIPASE\PANCRELIPASE PROTEASE
  12. AMLODIPINE [Concomitant]
     Active Substance: AMLODIPINE BESYLATE
  13. FAMOTIDINE. [Concomitant]
     Active Substance: FAMOTIDINE
  14. LABETALOL [Concomitant]
     Active Substance: LABETALOL\LABETALOL HYDROCHLORIDE
  15. FOLFIRINOX [Concomitant]
     Active Substance: FLUOROURACIL\IRINOTECAN\LEUCOVORIN\OXALIPLATIN
  16. ATORVASTATIN [Concomitant]
     Active Substance: ATORVASTATIN
     Indication: BLOOD CHOLESTEROL INCREASED
     Route: 048
     Dates: start: 20200822, end: 20210325
  17. GLUCAGON. [Concomitant]
     Active Substance: GLUCAGON

REACTIONS (4)
  - Alanine aminotransferase increased [Recovered/Resolved]
  - Blood bilirubin increased [Recovered/Resolved]
  - Aspartate aminotransferase increased [Recovered/Resolved]
  - Drug-induced liver injury [Recovered/Resolved]

NARRATIVE: CASE EVENT DATE: 20210325
